FAERS Safety Report 7291699-3 (Version None)
Quarter: 2011Q1

REPORT INFORMATION
  Report Type: 
  Country: None (occurrence: None)
  Receive Date: 20110214
  Receipt Date: 20110207
  Transmission Date: 20110831
  Serious: Yes (Hospitalization, Other)
  Sender: FDA-Public Use
  Company Number: JP-PFIZER INC-2011007256

PATIENT
  Age: 74 Year
  Sex: Female

DRUGS (4)
  1. CELECOXIB [Suspect]
     Indication: CERVICOBRACHIAL SYNDROME
     Dosage: 200 MG, 1X/DAY
     Route: 048
     Dates: start: 20101208, end: 20101212
  2. AMARYL [Concomitant]
  3. AMLODIPINE [Concomitant]
  4. ZETIA [Concomitant]

REACTIONS (1)
  - OCULOMUCOCUTANEOUS SYNDROME [None]
